FAERS Safety Report 9880994 (Version 2)
Quarter: 2014Q1

REPORT INFORMATION
  Report Type: Report from Study
  Country: NL (occurrence: NL)
  Receive Date: 20140207
  Receipt Date: 20140213
  Transmission Date: 20141002
  Serious: Yes (Other)
  Sender: FDA-Public Use
  Company Number: PHHO2014NL001701

PATIENT
  Sex: 0

DRUGS (13)
  1. CYCLOPHOSPHAMIDE [Suspect]
     Indication: STEM CELL TRANSPLANT
     Dosage: 1275 MG, UNK
     Route: 042
     Dates: start: 20140123
  2. CYCLOPHOSPHAMIDE [Suspect]
     Indication: GRAFT VERSUS HOST DISEASE
  3. FLUDARABINE [Concomitant]
     Indication: STEM CELL TRANSPLANT
     Dosage: 62.5 MG/M2, UNK
     Dates: start: 20140123
  4. FLUDARABINE [Concomitant]
     Indication: GRAFT VERSUS HOST DISEASE
  5. MYCOPHENOLATE MOFETIL [Concomitant]
     Indication: STEM CELL TRANSPLANT
     Dosage: UNK
     Dates: start: 20140128
  6. MYCOPHENOLATE MOFETIL [Concomitant]
     Indication: GRAFT VERSUS HOST DISEASE
  7. CYCLOSPORIN A [Concomitant]
     Indication: STEM CELL TRANSPLANT
     Dosage: UNK
     Dates: start: 20140128
  8. CYCLOSPORIN A [Concomitant]
     Indication: GRAFT VERSUS HOST DISEASE
  9. CIPROXIN                                /DEN/ [Concomitant]
     Dosage: 500 MG, BID
     Route: 048
     Dates: start: 20140122
  10. FLUCONAZOLE [Concomitant]
     Dosage: 400 MG, QD
     Route: 048
     Dates: start: 20140122
  11. PERINDOPRIL [Concomitant]
     Dosage: 2 MG, QD
     Route: 048
     Dates: start: 20140122
  12. HYDROCHLOROTHIAZIDE [Concomitant]
     Dosage: 12.5 MG, QD
     Route: 048
     Dates: start: 20140122
  13. VALACICLOVIR [Concomitant]
     Dosage: 500 MG, BID
     Dates: start: 20140129

REACTIONS (1)
  - Myocardial infarction [Recovered/Resolved]
